FAERS Safety Report 5633605-0 (Version None)
Quarter: 2008Q1

REPORT INFORMATION
  Report Type: 
  Country: None (occurrence: None)
  Receive Date: 20080221
  Receipt Date: 20080211
  Transmission Date: 20080703
  Serious: Yes (Hospitalization, Other)
  Sender: FDA-Public Use
  Company Number: US-PFIZER INC-2008013882

PATIENT
  Sex: Male
  Weight: 101 kg

DRUGS (8)
  1. LYRICA [Suspect]
     Route: 048
  2. ASPIRIN [Concomitant]
  3. LEVAQUIN [Concomitant]
  4. PERCOCET [Concomitant]
  5. CYMBALTA [Concomitant]
  6. ZOCOR [Concomitant]
  7. LEVOXYL [Concomitant]
  8. OMEPRAZOLE [Concomitant]

REACTIONS (6)
  - ASTHENIA [None]
  - CONFUSIONAL STATE [None]
  - DELIRIUM [None]
  - MIGRAINE WITH AURA [None]
  - NAUSEA [None]
  - PARAESTHESIA [None]
